FAERS Safety Report 5963387-4 (Version None)
Quarter: 2008Q4

REPORT INFORMATION
  Report Type: 
  Country: None (occurrence: None)
  Receive Date: 20081124
  Receipt Date: 20081117
  Transmission Date: 20090506
  Serious: Yes (Hospitalization)
  Sender: FDA-Public Use
  Company Number: B0546628A

PATIENT
  Age: 83 Year
  Sex: Male

DRUGS (2)
  1. AMOXICILLIN TRIHYDRATE [Suspect]
     Route: 048
     Dates: start: 20081016, end: 20081025
  2. CORTICOIDS [Concomitant]
     Indication: SCLERODERMA
     Route: 065

REACTIONS (3)
  - CIRCULATING ANTICOAGULANT POSITIVE [None]
  - COAGULATION FACTOR VIII LEVEL DECREASED [None]
  - HAEMATOMA [None]
